FAERS Safety Report 6109477-7 (Version None)
Quarter: 2009Q1

REPORT INFORMATION
  Report Type: 
  Country: None (occurrence: None)
  Receive Date: 20090310
  Receipt Date: 20090304
  Transmission Date: 20090719
  Serious: Yes (Death)
  Sender: FDA-Public Use
  Company Number: CN-BAXTER-2009BH003619

PATIENT
  Age: 2 Year
  Sex: Male

DRUGS (2)
  1. DEXTROSE 10% [Suspect]
     Indication: DRUG USE FOR UNKNOWN INDICATION
     Route: 042
     Dates: start: 20090303, end: 20090303
  2. CEFOTAXIME [Suspect]
     Indication: DRUG USE FOR UNKNOWN INDICATION
     Route: 042
     Dates: start: 20090303, end: 20090303

REACTIONS (2)
  - DEATH [None]
  - VOMITING [None]
